FAERS Safety Report 6061234-6 (Version None)
Quarter: 2009Q1

REPORT INFORMATION
  Report Type: 
  Country: None (occurrence: None)
  Receive Date: 20090202
  Receipt Date: 20090122
  Transmission Date: 20090719
  Serious: Yes (Hospitalization, Other)
  Sender: FDA-Public Use
  Company Number: FR-ASTRAZENECA-2009CG00253

PATIENT
  Age: 58 Year
  Sex: Male

DRUGS (2)
  1. CRESTOR [Suspect]
     Route: 048
     Dates: start: 20080601, end: 20081226
  2. DI-ANTALVIC [Concomitant]
     Indication: PELVIC FRACTURE

REACTIONS (7)
  - AMNESIA [None]
  - ASTHENOPIA [None]
  - DYSPNOEA EXERTIONAL [None]
  - HEADACHE [None]
  - HYPOAESTHESIA [None]
  - PITYRIASIS ROSEA [None]
  - SWELLING FACE [None]
